FAERS Safety Report 8230381-2 (Version None)
Quarter: 2012Q1

REPORT INFORMATION
  Report Type: 
  Country: None (occurrence: None)
  Receive Date: 20120322
  Receipt Date: 20120322
  Transmission Date: 20120608
  Serious: No
  Sender: FDA-Public Use
  Company Number: None

PATIENT

DRUGS (2)
  1. STRATTERA [Suspect]
     Dosage: TABLET ORAL
     Route: 048
  2. LIPITOR [Suspect]
     Dosage: TABLET ORAL
     Route: 048

REACTIONS (3)
  - DRUG DISPENSING ERROR [None]
  - WRONG DRUG ADMINISTERED [None]
  - MEDICATION ERROR [None]
